FAERS Safety Report 23756986 (Version 2)
Quarter: 2024Q2

REPORT INFORMATION
  Report Type: Report from Study
  Country: US (occurrence: US)
  Receive Date: 20240418
  Receipt Date: 20240524
  Transmission Date: 20240716
  Serious: Yes (Other)
  Sender: FDA-Public Use
  Company Number: US-OTSUKA PHARMACEUTICAL NETHERLANDS B.V.-AUR-005600

PATIENT
  Age: 25 Year
  Sex: Female
  Weight: 97.7 kg

DRUGS (16)
  1. LUPKYNIS [Suspect]
     Active Substance: VOCLOSPORIN
     Indication: Lupus nephritis
     Dosage: 23.7 MILLIGRAM, BID
     Route: 048
     Dates: start: 20230730, end: 20240324
  2. LUPKYNIS [Suspect]
     Active Substance: VOCLOSPORIN
     Dosage: UNK
     Route: 048
     Dates: start: 20240425
  3. JARDIANCE [Concomitant]
     Active Substance: EMPAGLIFLOZIN
     Indication: Proteinuria
     Dosage: 10 MILLIGRAM, QD
     Route: 048
     Dates: start: 20230615, end: 20240324
  4. AMLODIPINE BESYLATE [Concomitant]
     Active Substance: AMLODIPINE BESYLATE
     Indication: Hypertension
     Dosage: UNK
     Dates: start: 20210427, end: 20240324
  5. VALSARTAN [Concomitant]
     Active Substance: VALSARTAN
     Indication: Hypertension
     Dosage: 320 MILLIGRAM, QD
     Route: 048
     Dates: start: 20210427, end: 20240324
  6. SPIRONOLACTONE [Concomitant]
     Active Substance: SPIRONOLACTONE
     Indication: Hypertension
     Dosage: UNK
     Dates: start: 20230523, end: 20240326
  7. MYFORTIC [Concomitant]
     Active Substance: MYCOPHENOLATE SODIUM
     Indication: Lupus nephritis
     Dosage: 540 MILLIGRAM, BID
     Route: 048
     Dates: start: 20180516, end: 20240326
  8. BUMETANIDE [Concomitant]
     Active Substance: BUMETANIDE
     Indication: Swelling
     Dosage: UNK
     Dates: start: 20210708, end: 20240326
  9. CHLORTHALIDONE [Concomitant]
     Active Substance: CHLORTHALIDONE
     Indication: Hypertension
     Dosage: UNK
     Dates: start: 20211118, end: 20240326
  10. AZATHIOPRINE [Concomitant]
     Active Substance: AZATHIOPRINE
     Indication: Lupus nephritis
     Dosage: 100 MILLIGRAM, QD
     Route: 048
     Dates: start: 20240326
  11. NIFEDIPINE [Concomitant]
     Active Substance: NIFEDIPINE
     Indication: Blood pressure measurement
     Dosage: 30 MILLIGRAM, QD
     Route: 048
     Dates: start: 20240326
  12. BENLYSTA [Concomitant]
     Active Substance: BELIMUMAB
     Indication: Lupus nephritis
     Dosage: 937 MILLIGRAM, MONTHLY
     Route: 042
     Dates: start: 20221209
  13. PREDNISONE [Concomitant]
     Active Substance: PREDNISONE
     Indication: Lupus nephritis
     Dosage: 5 MILLIGRAM, QD
     Route: 048
     Dates: start: 20230207
  14. PLAQUENIL [Concomitant]
     Active Substance: HYDROXYCHLOROQUINE SULFATE
     Indication: Lupus nephritis
     Dosage: 200 MILLIGRAM, BID
     Route: 048
     Dates: start: 20180526
  15. CYTOXAN [Concomitant]
     Active Substance: CYCLOPHOSPHAMIDE
     Indication: Lupus nephritis
     Dosage: UNK
  16. DEPO-PROVERA [Concomitant]
     Active Substance: MEDROXYPROGESTERONE ACETATE
     Indication: Contraception
     Dosage: UNK

REACTIONS (2)
  - Abortion spontaneous [Recovered/Resolved]
  - Maternal exposure during pregnancy [Unknown]

NARRATIVE: CASE EVENT DATE: 20240324
